FAERS Safety Report 7281374-3 (Version None)
Quarter: 2011Q1

REPORT INFORMATION
  Report Type: 
  Country: None (occurrence: None)
  Receive Date: 20110208
  Receipt Date: 20110128
  Transmission Date: 20110831
  Serious: Yes (Hospitalization)
  Sender: FDA-Public Use
  Company Number: DE-JNJFOC-20100704993

PATIENT
  Sex: Male
  Weight: 29 kg

DRUGS (7)
  1. POTASSIUM [Concomitant]
  2. CYCLOSPORINE [Concomitant]
  3. MESALAMINE [Concomitant]
     Route: 054
  4. VITAMIN K TAB [Concomitant]
  5. REMICADE [Suspect]
     Route: 042
  6. REMICADE [Suspect]
     Indication: INFLAMMATORY BOWEL DISEASE
     Route: 042
  7. MESALAMINE [Concomitant]
     Route: 048

REACTIONS (1)
  - PYREXIA [None]
